FAERS Safety Report 5642416-1 (Version None)
Quarter: 2008Q1

REPORT INFORMATION
  Report Type: 
  Country: None (occurrence: None)
  Receive Date: 20080227
  Receipt Date: 20080227
  Transmission Date: 20080703
  Serious: Yes (Other)
  Sender: FDA-Public Use
  Company Number: None

PATIENT
  Age: 65 Year
  Sex: Female

DRUGS (8)
  1. FOSAMAX [Suspect]
     Indication: OSTEOPOROSIS
     Dosage: 10MG DAILY - 3YRS  70MG WKLY - 1 1/2 YR  4 1/2 YRS
     Dates: end: 20050401
  2. ZOCOR [Concomitant]
  3. BENICAR [Concomitant]
  4. ZOLOFT [Concomitant]
  5. PREDNISONE TAB [Concomitant]
  6. ARAVA [Concomitant]
  7. ENBREL [Concomitant]
  8. HUMIRA [Concomitant]

REACTIONS (1)
  - OSTEONECROSIS [None]
